FAERS Safety Report 20614680 (Version 1)
Quarter: 2022Q1

REPORT INFORMATION
  Report Type: Spontaneous
  Country: FR (occurrence: FR)
  Receive Date: 20220321
  Receipt Date: 20220321
  Transmission Date: 20220423
  Serious: Yes (Congenital Anomaly, Other)
  Sender: FDA-Public Use
  Company Number: FR-ABBVIE-22K-056-4321383-00

PATIENT

DRUGS (2)
  1. VALPROATE SODIUM [Suspect]
     Active Substance: VALPROATE SODIUM
     Indication: Maternal exposure timing unspecified
     Route: 064
  2. PHENOBARBITAL [Suspect]
     Active Substance: PHENOBARBITAL
     Indication: Maternal exposure timing unspecified
     Route: 064

REACTIONS (23)
  - Heart disease congenital [Unknown]
  - Microcephaly [Unknown]
  - Dysmorphism [Unknown]
  - Language disorder [Unknown]
  - Behaviour disorder [Unknown]
  - Educational problem [Unknown]
  - Cryptorchism [Unknown]
  - Cardiac murmur [Unknown]
  - Pulmonary vascular disorder [Unknown]
  - Ventricular septal defect [Unknown]
  - Electrocardiogram repolarisation abnormality [Unknown]
  - Myopia [Unknown]
  - Visual field defect [Unknown]
  - Intention tremor [Unknown]
  - Strabismus [Unknown]
  - Visual impairment [Unknown]
  - Inguinal hernia [Unknown]
  - Ear, nose and throat disorder [Unknown]
  - Eye disorder [Unknown]
  - Bradykinesia [Unknown]
  - Limb malformation [Unknown]
  - Learning disorder [Unknown]
  - Foetal exposure during pregnancy [Unknown]
